FAERS Safety Report 8912761 (Version 2)
Quarter: 2013Q3

REPORT INFORMATION
  Report Type: Spontaneous
  Country: US (occurrence: US)
  Receive Date: 20121115
  Receipt Date: 20130805
  Transmission Date: 20140515
  Serious: Yes (Hospitalization)
  Sender: FDA-Public Use
  Company Number: US-B.I. PHARMACEUTICALS,INC./RIDGEFIELD-2012-BI-00094BP

PATIENT
  Age: 59 Year
  Sex: Female
  Weight: 147.42 kg

DRUGS (23)
  1. PRADAXA [Suspect]
     Indication: ATRIAL FIBRILLATION
     Dosage: 300 MG
     Route: 048
     Dates: start: 20110131, end: 20111018
  2. PRADAXA [Suspect]
     Indication: ANTICOAGULANT THERAPY
  3. HUMULIN N [Concomitant]
     Route: 058
  4. NOVOLOG [Concomitant]
     Route: 058
  5. VITAMIN D [Concomitant]
     Route: 048
  6. CADUET [Concomitant]
     Route: 048
  7. ELAVIL [Concomitant]
     Dosage: 25 MG
     Route: 048
  8. FISH OIL [Concomitant]
     Dosage: 1000 MG
     Route: 048
  9. FLEXERIL [Concomitant]
     Indication: MUSCLE SPASMS
     Route: 048
  10. GLUCOPHAGE [Concomitant]
     Dosage: 2000 MG
     Route: 048
  11. LYRICA [Concomitant]
     Dosage: 450 MG
     Route: 048
  12. MICARDIS HCT [Concomitant]
     Route: 048
  13. MIRALAX [Concomitant]
     Dosage: 17 G
     Route: 048
  14. MULTAQ [Concomitant]
     Indication: ATRIAL FIBRILLATION
     Dosage: 800 MG
     Route: 048
  15. MULTIVITAMINS AND MINERALS [Concomitant]
     Route: 048
  16. PLAVIX [Concomitant]
     Indication: ATRIAL FIBRILLATION
     Dosage: 75 MG
     Route: 048
  17. PREVACID [Concomitant]
     Dosage: 15 MG
     Route: 048
  18. SYMLIN [Concomitant]
     Route: 058
  19. ASPIRIN [Concomitant]
     Indication: ATRIAL FIBRILLATION
     Dosage: 81 MG
     Route: 048
  20. BIOTIN [Concomitant]
     Dosage: 1 MG
     Route: 048
  21. FERROUS SULFATE [Concomitant]
     Dosage: 650 MG
     Route: 048
  22. VITAMIN E [Concomitant]
     Dosage: 400 U
     Route: 048
  23. HYDROCHLOROTHIAZIDE [Concomitant]

REACTIONS (4)
  - Gastrointestinal haemorrhage [Recovered/Resolved]
  - Anaemia [Unknown]
  - Epistaxis [Unknown]
  - Postmenopausal haemorrhage [Unknown]
